FAERS Safety Report 9140903 (Version 2)
Quarter: 2013Q2

REPORT INFORMATION
  Report Type: Spontaneous
  Country: US (occurrence: US)
  Receive Date: 20130305
  Receipt Date: 20130424
  Transmission Date: 20140414
  Serious: No
  Sender: FDA-Public Use
  Company Number: US-PFIZER INC-2013071850

PATIENT
  Age: 18 Year
  Sex: Male
  Weight: 64.85 kg

DRUGS (1)
  1. XYNTHA SOLOFUSE [Suspect]
     Indication: FACTOR VIII DEFICIENCY
     Dosage: 60 IU/KG PER WEEK, (DIVIDED OVER 3 TIMES PER WEEK)

REACTIONS (2)
  - Disease complication [Unknown]
  - Off label use [Unknown]
